FAERS Safety Report 12542621 (Version 1)
Quarter: 2016Q3

REPORT INFORMATION
  Report Type: Spontaneous
  Country: US (occurrence: US)
  Receive Date: 20160709
  Receipt Date: 20160709
  Transmission Date: 20161109
  Serious: No
  Sender: FDA-Public Use
  Company Number: US-JNJFOC-20160613835

PATIENT
  Sex: Male

DRUGS (8)
  1. KLONOPIN [Concomitant]
     Active Substance: CLONAZEPAM
     Route: 048
  2. ATIVAN [Concomitant]
     Active Substance: LORAZEPAM
     Route: 048
  3. INVEGA SUSTENNA [Suspect]
     Active Substance: PALIPERIDONE PALMITATE
     Indication: BIPOLAR I DISORDER
     Route: 030
     Dates: start: 20141103, end: 2016
  4. VISTARIL [Concomitant]
     Active Substance: HYDROXYZINE PAMOATE
     Route: 048
  5. SEROQUEL [Concomitant]
     Active Substance: QUETIAPINE FUMARATE
     Route: 048
  6. ADDERALL [Concomitant]
     Active Substance: AMPHETAMINE ASPARTATE\AMPHETAMINE SULFATE\DEXTROAMPHETAMINE SACCHARATE\DEXTROAMPHETAMINE SULFATE
     Route: 048
  7. INVEGA TRINZA [Suspect]
     Active Substance: PALIPERIDONE PALMITATE
     Indication: BIPOLAR I DISORDER
     Route: 030
     Dates: start: 2016, end: 20160606
  8. METHAMPHETAMINE [Suspect]
     Active Substance: METHAMPHETAMINE
     Indication: PRODUCT USED FOR UNKNOWN INDICATION
     Route: 065

REACTIONS (3)
  - Akathisia [Unknown]
  - Off label use [Unknown]
  - Product use issue [Unknown]

NARRATIVE: CASE EVENT DATE: 2014
